FAERS Safety Report 9916540 (Version 2)
Quarter: 2014Q1

REPORT INFORMATION
  Report Type: Spontaneous
  Country: IT (occurrence: IT)
  Receive Date: 20140221
  Receipt Date: 20140304
  Transmission Date: 20141002
  Serious: Yes (Other)
  Sender: FDA-Public Use
  Company Number: PHHY2014IT021202

PATIENT
  Age: 82 Year
  Sex: Female

DRUGS (2)
  1. ZOMETA [Suspect]
     Indication: NEOPLASM
     Dosage: 4 MG, CYCLIC
     Route: 042
     Dates: start: 20120901, end: 20130601
  2. XELODA [Concomitant]
     Dosage: UNK UKN, UNK

REACTIONS (1)
  - Osteonecrosis of jaw [Unknown]
